FAERS Safety Report 17431189 (Version 1)
Quarter: 2020Q1

REPORT INFORMATION
  Report Type: Spontaneous
  Country: US (occurrence: US)
  Receive Date: 20200217
  Receipt Date: 20200217
  Transmission Date: 20200409
  Serious: Yes (Disabling)
  Sender: FDA-Public Use
  Company Number: None

PATIENT
  Age: 45 Year
  Sex: Female
  Weight: 79.65 kg

DRUGS (1)
  1. HALIPERIDIOL [Suspect]
     Active Substance: HALOPERIDOL
     Indication: SCHIZOPHRENIA
     Dates: end: 20190601

REACTIONS (7)
  - Blood cholesterol increased [None]
  - Weight increased [None]
  - Sleep-related eating disorder [None]
  - Abnormal behaviour [None]
  - Gastrooesophageal reflux disease [None]
  - Arthralgia [None]
  - Hypertension [None]

NARRATIVE: CASE EVENT DATE: 20170601
